FAERS Safety Report 7803310-0 (Version None)
Quarter: 2011Q4

REPORT INFORMATION
  Report Type: 
  Country: None (occurrence: None)
  Receive Date: 20111007
  Receipt Date: 20110928
  Transmission Date: 20120403
  Serious: Yes (Other)
  Sender: FDA-Public Use
  Company Number: SG-SANOFI-AVENTIS-2011SA063257

PATIENT
  Age: 39 Year
  Sex: Female

DRUGS (2)
  1. METRONIDAZOLE [Suspect]
     Route: 065
  2. NAPROXEN [Concomitant]

REACTIONS (1)
  - ANGIOEDEMA [None]
